FAERS Safety Report 9049803 (Version 1)
Quarter: 2013Q1

REPORT INFORMATION
  Report Type: Spontaneous
  Country: US (occurrence: US)
  Receive Date: 20130205
  Receipt Date: 20130205
  Transmission Date: 20140127
  Serious: Yes (Hospitalization)
  Sender: FDA-Public Use
  Company Number: US-BAYER-2013-014174

PATIENT
  Age: 29 Year
  Sex: Female

DRUGS (7)
  1. GIANVI [Suspect]
  2. YAZ [Suspect]
     Indication: CONTRACEPTION
  3. IBUPROFEN [IBUPROFEN SODIUM] [Concomitant]
     Dosage: 800 MG, UNK
  4. METRONIDAZOLE [Concomitant]
  5. MOTRIN [Concomitant]
  6. TYLENOL WITH CODEINE [Concomitant]
  7. ACETAMINOPHEN W/CODEINE [Concomitant]
     Indication: PAIN

REACTIONS (1)
  - Pulmonary embolism [None]
